FAERS Safety Report 9162720 (Version 1)
Quarter: 2013Q1

REPORT INFORMATION
  Report Type: Spontaneous
  Country: GB (occurrence: None)
  Receive Date: 20130201
  Receipt Date: 20130201
  Transmission Date: 20140127
  Serious: Yes (Other)
  Sender: FDA-Public Use
  Company Number: AUR-APL-2013-01075

PATIENT
  Age: 30 Year
  Sex: Male

DRUGS (3)
  1. QUETIAPINE (QUETIAPINE) (QUETIAPINE) [Suspect]
     Indication: PRODUCT USED FOR UNKNOWN INDICATION
     Route: 048
  2. LORAZEPAM (LORAZEPAM) [Concomitant]
  3. HALOPERIDOL (HALOPERIDOL) (HALOPERIDOL) [Concomitant]

REACTIONS (1)
  - No therapeutic response [None]
